FAERS Safety Report 8177450-3 (Version None)
Quarter: 2012Q1

REPORT INFORMATION
  Report Type: 
  Country: None (occurrence: None)
  Receive Date: 20120301
  Receipt Date: 20120227
  Transmission Date: 20120608
  Serious: Yes (Other)
  Sender: FDA-Public Use
  Company Number: US-PFIZER INC-2012009937

PATIENT
  Sex: Female
  Weight: 77.551 kg

DRUGS (5)
  1. AVANDAMET [Concomitant]
     Indication: DIABETES MELLITUS
     Dosage: 1004 MG, 1X/DAY
  2. SITAGLIPTIN AND METFORMIN HYDROCHLORIDE [Concomitant]
     Dosage: 50/1000
  3. GLIPIZIDE [Concomitant]
     Indication: DIABETES MELLITUS
     Dosage: 10 MG, 2X/DAY
  4. LIPITOR [Suspect]
     Indication: HYPERCHOLESTEROLAEMIA
     Dosage: 10 MG, 1X/DAY
     Route: 048
     Dates: end: 20100101
  5. LIPITOR [Suspect]
     Dosage: 10 MG, 1X/DAY
     Route: 048

REACTIONS (3)
  - MALAISE [None]
  - RASH [None]
  - WEIGHT DECREASED [None]
